FAERS Safety Report 9344945 (Version 3)
Quarter: 2013Q3

REPORT INFORMATION
  Report Type: Spontaneous
  Country: JP (occurrence: JP)
  Receive Date: 20130612
  Receipt Date: 20130723
  Transmission Date: 20140515
  Serious: Yes (Hospitalization, Other)
  Sender: FDA-Public Use
  Company Number: JP-BRISTOL-MYERS SQUIBB COMPANY-19005206

PATIENT
  Age: 63 Year
  Sex: Male
  Weight: 73 kg

DRUGS (10)
  1. ERBITUX SOLN FOR INF 5MG/ML [Suspect]
     Indication: RECTAL CANCER
     Dosage: MOST RECENT DOSE 30MAY13
     Route: 041
     Dates: start: 20130328, end: 20130530
  2. OXALIPLATIN [Suspect]
     Indication: RECTAL CANCER
     Route: 041
     Dates: start: 20130328, end: 20130516
  3. CALCIUM LEVOFOLINATE [Suspect]
     Indication: RECTAL CANCER
     Route: 041
     Dates: start: 20130328, end: 20130516
  4. 5-FLUOROURACIL [Suspect]
     Indication: RECTAL CANCER
     Dosage: 28MAR-16MAY13-48D-4600MG-1IN2WK-IV
     Route: 040
     Dates: start: 20130328, end: 20130516
  5. AZELNIDIPINE [Concomitant]
     Indication: HYPERTENSION
     Route: 048
     Dates: start: 2011, end: 20130604
  6. AVAPRO [Concomitant]
     Indication: HYPERTENSION
     Route: 048
     Dates: start: 2011, end: 20130604
  7. MINOMYCIN [Concomitant]
     Indication: PROPHYLAXIS
     Dosage: CAPS
     Route: 048
     Dates: start: 20130328, end: 20130604
  8. NEXIUM [Concomitant]
     Indication: GASTRITIS PROPHYLAXIS
     Route: 048
     Dates: start: 20130528, end: 20130604
  9. MUCOSTA [Concomitant]
     Indication: GASTRITIS PROPHYLAXIS
     Route: 048
     Dates: start: 20130528, end: 20130604
  10. UREAPHIL [Concomitant]
     Indication: PROPHYLAXIS
     Dosage: CUTANEOUS EMULSION
     Route: 061
     Dates: start: 20130328, end: 20130604

REACTIONS (2)
  - Duodenal ulcer haemorrhage [Recovered/Resolved]
  - Shock [Recovered/Resolved]
